FAERS Safety Report 23493017 (Version 2)
Quarter: 2024Q1

REPORT INFORMATION
  Report Type: Report from Study
  Country: US (occurrence: US)
  Receive Date: 20240207
  Receipt Date: 20240207
  Transmission Date: 20240409
  Serious: No
  Sender: FDA-Public Use
  Company Number: US-ORG100014127-2023001076

PATIENT
  Age: 59 Year
  Sex: Female

DRUGS (13)
  1. LYSODREN [Suspect]
     Active Substance: MITOTANE
     Indication: Adrenal gland cancer
     Dosage: 03 TIMES A DAY
     Route: 048
     Dates: start: 20231124
  2. AMLODIPINE BESYLATE [Concomitant]
     Active Substance: AMLODIPINE BESYLATE
     Indication: Product used for unknown indication
  3. Cyclobenzaprine 10 mg tablets [Concomitant]
     Indication: Product used for unknown indication
  4. ESCITALOPRAM 20 MG TABLETS [Concomitant]
     Indication: Product used for unknown indication
  5. LISINOPRIL [Concomitant]
     Active Substance: LISINOPRIL
     Indication: Product used for unknown indication
  6. Melatonin 3 mg tablets [Concomitant]
     Indication: Product used for unknown indication
  7. Metoprolol Tartrate 25 mg tablets [Concomitant]
     Indication: Product used for unknown indication
  8. Oxycodone 5 mg immediate rel tabs [Concomitant]
     Indication: Product used for unknown indication
  9. PANTOPRAZOLE SODIUM [Concomitant]
     Active Substance: PANTOPRAZOLE SODIUM
     Indication: Product used for unknown indication
  10. Potassium chloride 10 MEQ ER Tablets [Concomitant]
     Indication: Product used for unknown indication
  11. Sucralfate  1gm tablets [Concomitant]
     Indication: Product used for unknown indication
  12. Tylenol 8 HR 650mg tablets [Concomitant]
     Indication: Product used for unknown indication
  13. XARELTO [Concomitant]
     Active Substance: RIVAROXABAN
     Indication: Product used for unknown indication

REACTIONS (3)
  - Dry mouth [Not Recovered/Not Resolved]
  - Dizziness [Not Recovered/Not Resolved]
  - Nausea [Not Recovered/Not Resolved]

NARRATIVE: CASE EVENT DATE: 20231125
